FAERS Safety Report 16019843 (Version 3)
Quarter: 2019Q1

REPORT INFORMATION
  Report Type: Spontaneous
  Country: CN (occurrence: CN)
  Receive Date: 20190228
  Receipt Date: 20190311
  Transmission Date: 20190418
  Serious: Yes (Death, Hospitalization, Other)
  Sender: FDA-Public Use
  Company Number: CN-B.I. PHARMACEUTICALS,INC./RIDGEFIELD-2019-BI-008085

PATIENT
  Age: 33 Year
  Sex: Male
  Weight: 51 kg

DRUGS (3)
  1. CELEBREX [Concomitant]
     Active Substance: CELECOXIB
     Indication: PAIN
     Dosage: DOSE- 1 CAPSULE/TIME, QD OR BID
     Route: 065
     Dates: start: 20190128, end: 20190219
  2. ANTINE [Concomitant]
     Indication: PAIN
     Dosage: DOSE- 1 CAPSULE/TIME, QD OR BID; FORM: SUSTAINED RELEASE CAPSULES
     Route: 065
     Dates: start: 20190128, end: 20190219
  3. GILOTRIF [Suspect]
     Active Substance: AFATINIB
     Indication: LUNG ADENOCARCINOMA
     Route: 048
     Dates: start: 20190128

REACTIONS (4)
  - Peripheral swelling [Not Recovered/Not Resolved]
  - Peripheral swelling [Unknown]
  - Malignant neoplasm progression [Fatal]
  - Swelling face [Unknown]

NARRATIVE: CASE EVENT DATE: 201902
